FAERS Safety Report 11196916 (Version 1)
Quarter: 2015Q2

REPORT INFORMATION
  Report Type: Spontaneous
  Country: IT (occurrence: IT)
  Receive Date: 20150617
  Receipt Date: 20150617
  Transmission Date: 20150821
  Serious: Yes (Hospitalization)
  Sender: FDA-Public Use
  Company Number: IT-SA-2015SA082253

PATIENT
  Age: 83 Year
  Sex: Female

DRUGS (5)
  1. LASIX [Suspect]
     Active Substance: FUROSEMIDE
     Indication: POLYURIA
     Dosage: DOSE:1 UNIT(S)
     Route: 048
     Dates: start: 20150101, end: 20150502
  2. ZOLOFT [Concomitant]
     Active Substance: SERTRALINE HYDROCHLORIDE
     Dosage: 50MG FILM COATED DIVISIBLE TABLETS
     Route: 048
  3. NEO-LOTAN PLUS [Suspect]
     Active Substance: HYDROCHLOROTHIAZIDE\LOSARTAN POTASSIUM
     Indication: POLYURIA
     Dosage: DOSE:0.5 UNIT(S)
     Route: 048
     Dates: start: 20150101, end: 20150502
  4. LORAZEPAM. [Concomitant]
     Active Substance: LORAZEPAM
     Route: 048
  5. MADOPAR [Concomitant]
     Active Substance: BENSERAZIDE HYDROCHLORIDE\LEVODOPA
     Dosage: 100 MG + 25 MG
     Route: 048

REACTIONS (4)
  - Confusional state [Unknown]
  - Hypokalaemia [Unknown]
  - Fatigue [Unknown]
  - Sopor [Unknown]

NARRATIVE: CASE EVENT DATE: 20150504
